FAERS Safety Report 5663720-7 (Version None)
Quarter: 2008Q1

REPORT INFORMATION
  Report Type: 
  Country: None (occurrence: None)
  Receive Date: 20080307
  Receipt Date: 20080226
  Transmission Date: 20080703
  Serious: Yes (Other)
  Sender: FDA-Public Use
  Company Number: 2008004773

PATIENT
  Age: 38 Year
  Weight: 106.5953 kg

DRUGS (1)
  1. ROGAINE 5 [Suspect]
     Indication: ALOPECIA
     Dosage: HALF A CAPFUL, TOPICAL
     Route: 061
     Dates: start: 20080225, end: 20080226

REACTIONS (3)
  - CHEST PAIN [None]
  - DIZZINESS [None]
  - DYSPNOEA [None]
